FAERS Safety Report 11872710 (Version 1)
Quarter: 2015Q4

REPORT INFORMATION
  Report Type: Spontaneous
  Country: IT (occurrence: IT)
  Receive Date: 20151228
  Receipt Date: 20151228
  Transmission Date: 20160305
  Serious: Yes (Hospitalization, Other)
  Sender: FDA-Public Use
  Company Number: IT-SILVERGATE PHARMACEUTICALS, INC.-2015SIL00006

PATIENT
  Age: 7 Month
  Sex: Male

DRUGS (5)
  1. ENALAPRIL [Suspect]
     Active Substance: ENALAPRIL
     Indication: CARDIAC FAILURE CONGESTIVE
     Dosage: 1.8 MG/KG, 1X/DAY
     Route: 048
  2. FUROSEMIDE. [Suspect]
     Active Substance: FUROSEMIDE
     Indication: CARDIAC FAILURE CONGESTIVE
     Dosage: 2 MG/KG, 1X/DAY
     Route: 048
  3. FUROSEMIDE. [Suspect]
     Active Substance: FUROSEMIDE
     Dosage: 1.7 MG/KG, 1X/DAY
     Route: 048
  4. ENALAPRIL [Suspect]
     Active Substance: ENALAPRIL
     Dosage: 1.3 MG/KG, 1X/DAY
     Route: 048
  5. FUROSEMIDE. [Suspect]
     Active Substance: FUROSEMIDE
     Dosage: 0.85 MG/KG, 1X/DAY
     Route: 048

REACTIONS (5)
  - Metabolic acidosis [Recovered/Resolved]
  - Dehydration [Recovered/Resolved]
  - Normochromic normocytic anaemia [None]
  - Acute kidney injury [Recovered/Resolved]
  - Hyponatraemia [Recovered/Resolved]
